FAERS Safety Report 7324879-9 (Version None)
Quarter: 2011Q1

REPORT INFORMATION
  Report Type: 
  Country: None (occurrence: None)
  Receive Date: 20110301
  Receipt Date: 20110224
  Transmission Date: 20110831
  Serious: Yes (Other)
  Sender: FDA-Public Use
  Company Number: KR-GENZYME-THYM-1002330

PATIENT
  Age: 6 Year
  Sex: Male

DRUGS (3)
  1. CYCLOSPORINE [Concomitant]
     Indication: APLASTIC ANAEMIA
     Dosage: UNK NG/ML, UNK
     Route: 065
     Dates: start: 20070201, end: 20070801
  2. METHYLPREDNISOLONE [Concomitant]
     Indication: APLASTIC ANAEMIA
     Dosage: 1 MG/KG, QD
     Route: 065
     Dates: start: 20070201
  3. THYMOGLOBULIN [Suspect]
     Indication: APLASTIC ANAEMIA
     Dosage: 2.5 MG/KG, QD
     Route: 042
     Dates: start: 20070201

REACTIONS (3)
  - IRON OVERLOAD [None]
  - NO THERAPEUTIC RESPONSE [None]
  - FEBRILE NEUTROPENIA [None]
